FAERS Safety Report 6328823-2 (Version None)
Quarter: 2009Q3

REPORT INFORMATION
  Report Type: 
  Country: None (occurrence: None)
  Receive Date: 20090818
  Receipt Date: 20090511
  Transmission Date: 20100115
  Serious: No
  Sender: FDA-Public Use
  Company Number: WAES 0901USA02489

PATIENT
  Age: 76 Year
  Sex: Female

DRUGS (4)
  1. JANUVIA [Suspect]
     Indication: DIABETES MELLITUS
     Dosage: 100 MG/DAILY/PO
     Route: 048
     Dates: start: 20090423
  2. ZANTAC [Concomitant]
  3. GLYBURIDE [Concomitant]
  4. METFORMIN HCL [Concomitant]

REACTIONS (6)
  - DYSPEPSIA [None]
  - GLYCOSYLATED HAEMOGLOBIN INCREASED [None]
  - NASAL CONGESTION [None]
  - NAUSEA [None]
  - OROPHARYNGEAL PAIN [None]
  - URINE OUTPUT DECREASED [None]
